FAERS Safety Report 9324193 (Version 1)
Quarter: 2013Q2

REPORT INFORMATION
  Report Type: Spontaneous
  Country: AU (occurrence: AU)
  Receive Date: 20130603
  Receipt Date: 20130603
  Transmission Date: 20140414
  Serious: Yes (Life-Threatening)
  Sender: FDA-Public Use
  Company Number: AU-ASTRAZENECA-2013SE37621

PATIENT
  Age: 71 Year
  Sex: Female

DRUGS (1)
  1. CRESTOR [Suspect]
     Dosage: 10 DOSE UNSPECIFIED DAILY
     Route: 048
     Dates: start: 20120601, end: 20120626

REACTIONS (2)
  - Feeling abnormal [Recovered/Resolved]
  - Suicide attempt [Recovered/Resolved]
